FAERS Safety Report 5802462-1 (Version None)
Quarter: 2008Q3

REPORT INFORMATION
  Report Type: 
  Country: None (occurrence: None)
  Receive Date: 20080708
  Receipt Date: 20080702
  Transmission Date: 20090109
  Serious: Yes (Hospitalization, Other)
  Sender: FDA-Public Use
  Company Number: IT-BAYER-200821322GPV

PATIENT
  Age: 69 Year
  Sex: Male
  Weight: 83 kg

DRUGS (6)
  1. MOXIFLOXACIN IV/PO VS CEFTRIAXONE/AZITHROMYCIN IV+ AMOX/CLAV. CLARI PO [Suspect]
     Indication: PNEUMONIA
     Route: 042
     Dates: start: 20080523, end: 20080529
  2. FORZAAR [Concomitant]
     Indication: HYPERTENSION
     Route: 048
     Dates: start: 19970101, end: 20080603
  3. ENOXAPARIN SODIUM [Concomitant]
     Indication: THROMBOSIS PROPHYLAXIS
     Route: 058
     Dates: start: 20080526, end: 20080624
  4. CLENILA [Concomitant]
     Indication: CHRONIC OBSTRUCTIVE PULMONARY DISEASE
     Route: 055
     Dates: start: 20080522
  5. BRONCOVALEAS [Concomitant]
     Indication: CHRONIC OBSTRUCTIVE PULMONARY DISEASE
     Route: 055
     Dates: start: 20080522
  6. OXIVENT [Concomitant]
     Indication: CHRONIC OBSTRUCTIVE PULMONARY DISEASE
     Route: 055
     Dates: start: 20080522

REACTIONS (5)
  - ACINETOBACTER INFECTION [None]
  - HYPERTRANSAMINASAEMIA [None]
  - PSEUDOMONAS INFECTION [None]
  - RENAL FAILURE ACUTE [None]
  - STEVENS-JOHNSON SYNDROME [None]
